FAERS Safety Report 5814305-0 (Version None)
Quarter: 2008Q3

REPORT INFORMATION
  Report Type: 
  Country: None (occurrence: None)
  Receive Date: 20080717
  Receipt Date: 20080710
  Transmission Date: 20090109
  Serious: Yes (Hospitalization, Other)
  Sender: FDA-Public Use
  Company Number: US-ELI_LILLY_AND_COMPANY-US200807001962

PATIENT
  Sex: Female

DRUGS (7)
  1. HUMALOG [Suspect]
  2. DIGITEK [Concomitant]
  3. WATER PILLS [Concomitant]
  4. WARFARIN SODIUM [Concomitant]
  5. FOSAMAX [Concomitant]
  6. SYNTHROID [Concomitant]
  7. DYAZIDE [Concomitant]

REACTIONS (22)
  - ANXIETY [None]
  - ASTHENIA [None]
  - CARDIAC PACEMAKER INSERTION [None]
  - CARDIAC PACEMAKER MALFUNCTION [None]
  - DIZZINESS [None]
  - EATING DISORDER [None]
  - ELECTROCARDIOGRAM PACEMAKER SPIKE [None]
  - FALL [None]
  - FLUID RETENTION [None]
  - HEADACHE [None]
  - LOSS OF CONSCIOUSNESS [None]
  - MALAISE [None]
  - MUSCULOSKELETAL PAIN [None]
  - NAUSEA [None]
  - NECK INJURY [None]
  - NECK PAIN [None]
  - PAIN IN EXTREMITY [None]
  - PERIPHERAL COLDNESS [None]
  - THERAPEUTIC AGENT TOXICITY [None]
  - THROMBOSIS [None]
  - VERTIGO [None]
  - WEIGHT DECREASED [None]
